FAERS Safety Report 7051275-4 (Version None)
Quarter: 2010Q4

REPORT INFORMATION
  Report Type: 
  Country: None (occurrence: None)
  Receive Date: 20101019
  Receipt Date: 20101018
  Transmission Date: 20110411
  Serious: Yes (Other)
  Sender: FDA-Public Use
  Company Number: US-BRISTOL-MYERS SQUIBB COMPANY-15337850

PATIENT
  Age: 77 Year
  Sex: Male

DRUGS (1)
  1. SINEMET [Suspect]
     Indication: PARKINSON'S DISEASE

REACTIONS (3)
  - INTESTINAL PERFORATION [None]
  - PERITONITIS [None]
  - VESICAL FISTULA [None]
